FAERS Safety Report 24980228 (Version 1)
Quarter: 2025Q1

REPORT INFORMATION
  Report Type: Spontaneous
  Country: CA (occurrence: CA)
  Receive Date: 20250218
  Receipt Date: 20250218
  Transmission Date: 20250408
  Serious: Yes (Hospitalization)
  Sender: ACCORD
  Company Number: None

PATIENT
  Age: 76 Year
  Sex: Female
  Weight: 61 kg

DRUGS (17)
  1. APIXABAN [Suspect]
     Active Substance: APIXABAN
     Indication: Atrial fibrillation
     Route: 048
  2. ESCITALOPRAM [Suspect]
     Active Substance: ESCITALOPRAM OXALATE
     Indication: Product used for unknown indication
     Route: 048
  3. TRAZODONE [Suspect]
     Active Substance: TRAZODONE HYDROCHLORIDE
     Indication: Product used for unknown indication
     Route: 048
  4. ACETAMINOPHEN [Concomitant]
     Active Substance: ACETAMINOPHEN
  5. VITAMIN C [Concomitant]
     Active Substance: ASCORBIC ACID
  6. DIGOXIN [Concomitant]
     Active Substance: DIGOXIN
  7. FERROUS FUMARATE [Concomitant]
     Active Substance: FERROUS FUMARATE
  8. FLUTICASONE PROPIONATE\SALMETEROL XINAFOATE [Concomitant]
     Active Substance: FLUTICASONE PROPIONATE\SALMETEROL XINAFOATE
  9. FUROSEMIDE [Concomitant]
     Active Substance: FUROSEMIDE
  10. HYDRALAZINE [Concomitant]
     Active Substance: HYDRALAZINE HYDROCHLORIDE
  11. ISOSORBIDE DINITRATE [Concomitant]
     Active Substance: ISOSORBIDE DINITRATE
  12. METOPROLOL [Concomitant]
     Active Substance: METOPROLOL
  13. RAMIPRIL [Concomitant]
     Active Substance: RAMIPRIL
  14. ROSUVASTATIN [Concomitant]
     Active Substance: ROSUVASTATIN
     Route: 065
  15. ALBUTEROL SULFATE [Concomitant]
     Active Substance: ALBUTEROL SULFATE
  16. TIOTROPIUM BROMIDE [Concomitant]
     Active Substance: TIOTROPIUM BROMIDE
     Route: 065
  17. TRAZODONE [Concomitant]
     Active Substance: TRAZODONE HYDROCHLORIDE

REACTIONS (6)
  - Gastrointestinal haemorrhage [Recovering/Resolving]
  - Ulcer haemorrhage [Recovering/Resolving]
  - Occult blood positive [Recovering/Resolving]
  - Haemoglobin decreased [Recovering/Resolving]
  - Anaemia [Recovering/Resolving]
  - Lethargy [Recovering/Resolving]
